FAERS Safety Report 15492859 (Version 16)
Quarter: 2020Q2

REPORT INFORMATION
  Report Type: Spontaneous
  Country: CA (occurrence: CA)
  Receive Date: 20181012
  Receipt Date: 20200504
  Transmission Date: 20200713
  Serious: Yes (Other)
  Sender: FDA-Public Use
  Company Number: CA-CELLTRION INC.-2018CA019306

PATIENT

DRUGS (19)
  1. INFLECTRA [Suspect]
     Active Substance: INFLIXIMAB-DYYB
     Indication: COLITIS ULCERATIVE
     Dosage: 900 MG, AT 0, 2, 6. THEN EVERY 8 WEEKS
     Route: 042
     Dates: start: 20180206, end: 20180206
  2. INFLECTRA [Suspect]
     Active Substance: INFLIXIMAB-DYYB
     Dosage: 900 MG (5MG/KG),AT 0, 2, 6. THEN EVERY 8 WEEKS
     Route: 042
     Dates: start: 20180322, end: 20180322
  3. INFLECTRA [Suspect]
     Active Substance: INFLIXIMAB-DYYB
     Dosage: 500 MG, OR 5MG/KG EVERY 8 WEEKS
     Route: 042
     Dates: start: 20190903
  4. INFLECTRA [Suspect]
     Active Substance: INFLIXIMAB-DYYB
     Dosage: 500 MG, OR 5MG/KG EVERY 8 WEEKS
     Route: 042
     Dates: start: 20190319, end: 20190319
  5. INFLECTRA [Suspect]
     Active Substance: INFLIXIMAB-DYYB
     Dosage: 10 MG/KG, STARTED IN HOSPITAL
     Route: 042
     Dates: start: 2018, end: 2018
  6. INFLECTRA [Suspect]
     Active Substance: INFLIXIMAB-DYYB
     Dosage: 900 MG, AT 0, 2, 6. THEN EVERY 8 WEEKS
     Route: 042
     Dates: start: 20181001
  7. INFLECTRA [Suspect]
     Active Substance: INFLIXIMAB-DYYB
     Dosage: 900 MG, AT 0, 2, 6. THEN EVERY 8 WEEKS
     Route: 042
     Dates: start: 20180612, end: 20180612
  8. INFLECTRA [Suspect]
     Active Substance: INFLIXIMAB-DYYB
     Dosage: 500 MG, OR 5MG/KG EVERY 8 WEEKS
     Route: 042
     Dates: start: 20200425
  9. INFLECTRA [Suspect]
     Active Substance: INFLIXIMAB-DYYB
     Dosage: 500 MG, OR 5MG/KG EVERY 8 WEEKS
     Route: 042
     Dates: start: 20191029
  10. INFLECTRA [Suspect]
     Active Substance: INFLIXIMAB-DYYB
     Dosage: 500 MG, OR 5MG/KG EVERY 8 WEEKS
     Route: 042
     Dates: start: 20191219
  11. TYLENOL WITH CODEINE [Concomitant]
     Active Substance: ACETAMINOPHEN\CODEINE PHOSPHATE
     Indication: PAIN
     Dosage: UNK, AS NEEDED
     Route: 048
  12. INFLECTRA [Suspect]
     Active Substance: INFLIXIMAB-DYYB
     Dosage: 900 MG, AT 0, 2, 6. THEN EVERY 8 WEEKS
     Route: 042
     Dates: start: 20180807, end: 20180807
  13. INFLECTRA [Suspect]
     Active Substance: INFLIXIMAB-DYYB
     Dosage: 500 MG, OR 5MG/KG EVERY 8 WEEKS
     Route: 042
     Dates: start: 20200214
  14. MEZAVANT [Concomitant]
     Active Substance: MESALAMINE
     Dosage: UNK
     Route: 048
  15. INFLECTRA [Suspect]
     Active Substance: INFLIXIMAB-DYYB
     Dosage: 500 MG, OR 5MG/KG EVERY 8 WEEKS
     Route: 042
     Dates: start: 20190710, end: 20190710
  16. INFLECTRA [Suspect]
     Active Substance: INFLIXIMAB-DYYB
     Dosage: 900 MG, AT 0, 2, 6. THEN EVERY 8 WEEKS
     Route: 042
     Dates: start: 20180308, end: 20180308
  17. INFLECTRA [Suspect]
     Active Substance: INFLIXIMAB-DYYB
     Dosage: 900 MG, AT 0, 2, 6. THEN 8 WEEKS
     Route: 042
  18. INFLECTRA [Suspect]
     Active Substance: INFLIXIMAB-DYYB
     Dosage: 500 MG, OR 5MG/KG EVERY 8 WEEKS
     Route: 042
     Dates: start: 20181129, end: 20181129
  19. INFLECTRA [Suspect]
     Active Substance: INFLIXIMAB-DYYB
     Dosage: 500 MG, OR 5MG/KG EVERY 8 WEEKS
     Route: 042
     Dates: start: 201905, end: 201905

REACTIONS (8)
  - Abdominal discomfort [Unknown]
  - Therapeutic product effect incomplete [Recovered/Resolved]
  - Incorrect dose administered [Unknown]
  - Nasopharyngitis [Unknown]
  - Off label use [Unknown]
  - Condition aggravated [Not Recovered/Not Resolved]
  - Haematochezia [Unknown]
  - Inappropriate schedule of product administration [Unknown]

NARRATIVE: CASE EVENT DATE: 20180322
